FAERS Safety Report 6699613-6 (Version None)
Quarter: 2010Q2

REPORT INFORMATION
  Report Type: 
  Country: None (occurrence: None)
  Receive Date: 20100428
  Receipt Date: 20100416
  Transmission Date: 20101027
  Serious: Yes (Other)
  Sender: FDA-Public Use
  Company Number: JP-BIOGENIDEC-2010BI013503

PATIENT
  Age: 16 Year
  Sex: Female

DRUGS (1)
  1. AVONEX [Suspect]
     Indication: RELAPSING-REMITTING MULTIPLE SCLEROSIS
     Route: 030
     Dates: start: 20090831, end: 20100201

REACTIONS (5)
  - DYSPHORIA [None]
  - EMOTIONAL DISTRESS [None]
  - MULTIPLE SCLEROSIS RELAPSE [None]
  - SELF INJURIOUS BEHAVIOUR [None]
  - SUICIDAL IDEATION [None]
